FAERS Safety Report 7983714-6 (Version None)
Quarter: 2011Q4

REPORT INFORMATION
  Report Type: 
  Country: None (occurrence: None)
  Receive Date: 20111215
  Receipt Date: 20111207
  Transmission Date: 20120403
  Serious: Yes (Hospitalization, Other)
  Sender: FDA-Public Use
  Company Number: US-BAXTER-2011BH037123

PATIENT
  Age: 61 Year
  Sex: Male

DRUGS (1)
  1. DIANEAL [Suspect]
     Indication: PERITONEAL DIALYSIS
     Route: 033
     Dates: start: 20060302

REACTIONS (5)
  - NEPHROLITHIASIS [None]
  - DEHYDRATION [None]
  - VOMITING [None]
  - BACK PAIN [None]
  - NAUSEA [None]
